FAERS Safety Report 8011466-2 (Version None)
Quarter: 2011Q4

REPORT INFORMATION
  Report Type: 
  Country: None (occurrence: None)
  Receive Date: 20111228
  Receipt Date: 20111222
  Transmission Date: 20120403
  Serious: No
  Sender: FDA-Public Use
  Company Number: US-PFIZER INC-2011238234

PATIENT
  Sex: Female
  Weight: 91.1 kg

DRUGS (2)
  1. PRILOSEC [Concomitant]
     Indication: GASTROOESOPHAGEAL REFLUX DISEASE
     Dosage: UNK
     Route: 065
  2. CHILDREN'S ADVIL COLD [Suspect]
     Indication: ARTHRALGIA
     Dosage: UNK, 1X/DAY
     Route: 048
     Dates: start: 20111005, end: 20111005

REACTIONS (1)
  - DYSGEUSIA [None]
